FAERS Safety Report 25601353 (Version 1)
Quarter: 2025Q3

REPORT INFORMATION
  Report Type: Spontaneous
  Country: CN (occurrence: CN)
  Receive Date: 20250724
  Receipt Date: 20250724
  Transmission Date: 20251021
  Serious: Yes (Hospitalization)
  Sender: ABBVIE
  Company Number: CN-ABBVIE-6380194

PATIENT
  Age: 65 Year
  Sex: Male
  Weight: 50 kg

DRUGS (5)
  1. VENETOCLAX [Suspect]
     Active Substance: VENETOCLAX
     Indication: Chemotherapy
     Route: 048
     Dates: start: 20250627, end: 20250710
  2. IDARUBICIN HYDROCHLORIDE [Suspect]
     Active Substance: IDARUBICIN HYDROCHLORIDE
     Indication: Chemotherapy
     Dosage: 20 MILLIGRAM
     Route: 041
     Dates: start: 20250612, end: 20250613
  3. IDARUBICIN HYDROCHLORIDE [Suspect]
     Active Substance: IDARUBICIN HYDROCHLORIDE
     Indication: Chemotherapy
     Dosage: 10 MILLIGRAM
     Route: 041
     Dates: start: 20250614, end: 20250614
  4. SODIUM CHLORIDE [Concomitant]
     Active Substance: SODIUM CHLORIDE
     Indication: Product used for unknown indication
     Dosage: 100 MILLIGRAM
     Route: 041
     Dates: start: 20250612, end: 20250618
  5. CYTARABINE [Suspect]
     Active Substance: CYTARABINE
     Indication: Chemotherapy
     Dosage: 100 MILLIGRAM
     Route: 041
     Dates: start: 20250612, end: 20250618

REACTIONS (3)
  - Myelosuppression [Recovering/Resolving]
  - Hiccups [Recovering/Resolving]
  - Pyrexia [Unknown]

NARRATIVE: CASE EVENT DATE: 20250612
